FAERS Safety Report 5279030-6 (Version None)
Quarter: 2007Q1

REPORT INFORMATION
  Report Type: 
  Country: None (occurrence: None)
  Receive Date: 20070328
  Receipt Date: 20061221
  Transmission Date: 20070707
  Serious: No
  Sender: FDA-Public Use
  Company Number: US-AMGEN-US202374

PATIENT
  Sex: Female
  Weight: 77.6 kg

DRUGS (10)
  1. NEULASTA [Suspect]
     Indication: CHEMOTHERAPY
     Route: 058
     Dates: start: 20061114
  2. TAXOTERE [Concomitant]
     Dates: start: 20061113, end: 20061113
  3. CYCLOPHOSPHAMIDE [Concomitant]
     Dates: start: 20061113, end: 20061113
  4. ALOXI [Concomitant]
     Dates: start: 20061113, end: 20061113
  5. TAGAMET [Concomitant]
     Dates: start: 20061113, end: 20061113
  6. BENADRYL [Concomitant]
     Dates: start: 20061113, end: 20061113
  7. DECADRON [Concomitant]
  8. GLUCOPHAGE [Concomitant]
  9. CRESTOR [Concomitant]
  10. DIOVAN [Concomitant]

REACTIONS (2)
  - DIZZINESS [None]
  - SWOLLEN TONGUE [None]
